FAERS Safety Report 6301915-X (Version None)
Quarter: 2009Q3

REPORT INFORMATION
  Report Type: 
  Country: None (occurrence: None)
  Receive Date: 20090807
  Receipt Date: 20090728
  Transmission Date: 20100115
  Serious: Yes (Other)
  Sender: FDA-Public Use
  Company Number: IE-JNJFOC-20090504059

PATIENT
  Sex: Female

DRUGS (4)
  1. REMICADE [Suspect]
     Indication: BECKER'S MUSCULAR DYSTROPHY
     Route: 042
  2. REMICADE [Suspect]
     Indication: BEHCET'S SYNDROME
     Route: 042
  3. DELTACORTRIL [Concomitant]
  4. COLCHICINE [Concomitant]

REACTIONS (8)
  - ABDOMINAL PAIN [None]
  - CHEST DISCOMFORT [None]
  - DIZZINESS [None]
  - DYSPNOEA [None]
  - FEELING HOT [None]
  - FLUSHING [None]
  - HOT FLUSH [None]
  - INFUSION RELATED REACTION [None]
